FAERS Safety Report 18078655 (Version 2)
Quarter: 2021Q2

REPORT INFORMATION
  Report Type: Spontaneous
  Country: CA (occurrence: CA)
  Receive Date: 20200727
  Receipt Date: 20210628
  Transmission Date: 20210717
  Serious: Yes (Other)
  Sender: FDA-Public Use
  Company Number: CA-TEVA-2020-CA-1805524

PATIENT
  Age: 47 Year
  Sex: Female

DRUGS (1)
  1. TOBRAMYCIN. [Suspect]
     Active Substance: TOBRAMYCIN
     Route: 065

REACTIONS (4)
  - Pneumonitis [Unknown]
  - Dyspnoea [Unknown]
  - Urticaria [Unknown]
  - Cough [Unknown]
